FAERS Safety Report 7117928-4 (Version None)
Quarter: 2010Q4

REPORT INFORMATION
  Report Type: 
  Country: None (occurrence: None)
  Receive Date: 20101118
  Receipt Date: 20101118
  Transmission Date: 20110411
  Serious: Yes (Hospitalization)
  Sender: FDA-Public Use
  Company Number: None

PATIENT
  Sex: Female
  Weight: 11.3399 kg

DRUGS (1)
  1. HYLAND'S TEETHING TABLETS HOMEOPATHIC HYLAND'S, INC. [Suspect]
     Indication: TEETHING
     Dosage: 2-3 TABLETS 4X DAILY PO
     Route: 048
     Dates: start: 20090901, end: 20101024

REACTIONS (1)
  - CONSTIPATION [None]
